FAERS Safety Report 6735142-9 (Version None)
Quarter: 2010Q2

REPORT INFORMATION
  Report Type: 
  Country: None (occurrence: None)
  Receive Date: 20100520
  Receipt Date: 20100520
  Transmission Date: 20101027
  Serious: Yes (Life-Threatening)
  Sender: FDA-Public Use
  Company Number: None

PATIENT
  Sex: Female
  Weight: 68.0396 kg

DRUGS (9)
  1. SIMVASTATIN [Suspect]
     Indication: BLOOD CHOLESTEROL INCREASED
     Dosage: 20 MG TABLET 1X DAILY ORAL
     Route: 048
     Dates: start: 20080801, end: 20100401
  2. SYNTHROID [Concomitant]
  3. VITAMIN C [Concomitant]
  4. MATURE COMPLETE MULTI-VITAMINS [Concomitant]
  5. FISH OIL [Concomitant]
  6. FLAXSEED OIL [Concomitant]
  7. VITAMIN E (NATURAL D-ALPHA) [Concomitant]
  8. CALCIUM CITRATE [Concomitant]
  9. MAGNESIUM [Concomitant]

REACTIONS (4)
  - FATIGUE [None]
  - LISTLESS [None]
  - MUSCLE SPASMS [None]
  - MUSCULAR WEAKNESS [None]
